FAERS Safety Report 8019591 (Version 2)
Quarter: 2012Q4

REPORT INFORMATION
  Report Type: 
  Country: US (occurrence: US)
  Receive Date: 20110704
  Receipt Date: 20121206
  Transmission Date: 20130627
  Serious: Yes (Other)
  Sender: FDA-Public Use
  Company Number: PHHY2011US54873

PATIENT
  Sex: Female

DRUGS (2)
  1. DIOVAN [Suspect]
     Dosage: 160 mg once daily in the morning
  2. METOPROLOL [Suspect]
     Dosage: 50 mg, QD

REACTIONS (6)
  - Cardiac disorder [Unknown]
  - Aneurysm [Unknown]
  - Bradyphrenia [Unknown]
  - Malaise [Unknown]
  - Memory impairment [Not Recovered/Not Resolved]
  - Stress [Unknown]
